FAERS Safety Report 15809173 (Version 1)
Quarter: 2019Q1

REPORT INFORMATION
  Report Type: Spontaneous
  Country: US (occurrence: US)
  Receive Date: 20190110
  Receipt Date: 20190110
  Transmission Date: 20190417
  Serious: No
  Sender: FDA-Public Use
  Company Number: PHEH2019US000822

PATIENT
  Sex: Female

DRUGS (8)
  1. DUREZOL [Suspect]
     Active Substance: DIFLUPREDNATE
     Indication: LACRIMATION INCREASED
  2. CARVEDILOL. [Concomitant]
     Active Substance: CARVEDILOL
     Indication: PRODUCT USED FOR UNKNOWN INDICATION
     Dosage: 25 MG, BID
     Route: 065
  3. DUREZOL [Suspect]
     Active Substance: DIFLUPREDNATE
     Indication: EYE INFLAMMATION
     Dosage: 1 GTT, BID
     Route: 047
  4. VITAMIN D3 [Concomitant]
     Active Substance: CHOLECALCIFEROL
     Indication: PRODUCT USED FOR UNKNOWN INDICATION
     Route: 065
  5. FISH OIL [Concomitant]
     Active Substance: FISH OIL
     Indication: PRODUCT USED FOR UNKNOWN INDICATION
     Route: 065
  6. DUREZOL [Suspect]
     Active Substance: DIFLUPREDNATE
     Indication: EYE DISCHARGE
  7. GLUCOSAMIN CHONDROITIN [Concomitant]
     Indication: PRODUCT USED FOR UNKNOWN INDICATION
     Route: 065
  8. VITAMIN C [Concomitant]
     Active Substance: ASCORBIC ACID
     Indication: PRODUCT USED FOR UNKNOWN INDICATION
     Route: 065

REACTIONS (1)
  - Epistaxis [Unknown]
